FAERS Safety Report 21274354 (Version 1)
Quarter: 2022Q3

REPORT INFORMATION
  Report Type: Spontaneous
  Country: US (occurrence: None)
  Receive Date: 20220830
  Receipt Date: 20220830
  Transmission Date: 20221027
  Serious: Yes (Hospitalization)
  Sender: FDA-Public Use
  Company Number: None

PATIENT
  Sex: Female

DRUGS (1)
  1. VYNDAMAX [Suspect]
     Active Substance: TAFAMIDIS
     Indication: Cystitis
     Route: 048

REACTIONS (8)
  - Lip exfoliation [None]
  - Skin exfoliation [None]
  - Nail cuticle fissure [None]
  - Pruritus [None]
  - Swollen tongue [None]
  - Speech disorder [None]
  - Eyelid ptosis [None]
  - Infection [None]
